FAERS Safety Report 16754571 (Version 3)
Quarter: 2019Q3

REPORT INFORMATION
  Report Type: Report from Study
  Country: CO (occurrence: CO)
  Receive Date: 20190829
  Receipt Date: 20190917
  Transmission Date: 20191005
  Serious: Yes (Hospitalization)
  Sender: FDA-Public Use
  Company Number: PHHY2019CO201067

PATIENT
  Age: 68 Year
  Sex: Female
  Weight: 67 kg

DRUGS (2)
  1. VOTRIENT [Suspect]
     Active Substance: PAZOPANIB HYDROCHLORIDE
     Indication: METASTATIC RENAL CELL CARCINOMA
     Dosage: 800 MG, QD
     Route: 048
     Dates: start: 201905
  2. LOSARTAN. [Suspect]
     Active Substance: LOSARTAN
     Indication: BLOOD PRESSURE INCREASED
     Route: 065

REACTIONS (13)
  - Nausea [Unknown]
  - Decreased appetite [Unknown]
  - Ocular icterus [Unknown]
  - Drug intolerance [Unknown]
  - Vomiting [Unknown]
  - Poisoning [Unknown]
  - Hypersensitivity [Unknown]
  - Dysstasia [Unknown]
  - Haematochezia [Unknown]
  - Blood urine present [Unknown]
  - Gallbladder disorder [Unknown]
  - Hepatic cirrhosis [Unknown]
  - Dizziness [Unknown]

NARRATIVE: CASE EVENT DATE: 20190614
